FAERS Safety Report 7561916-0 (Version None)
Quarter: 2011Q2

REPORT INFORMATION
  Report Type: 
  Country: None (occurrence: None)
  Receive Date: 20110621
  Receipt Date: 20110610
  Transmission Date: 20111010
  Serious: Yes (Other)
  Sender: FDA-Public Use
  Company Number: US-ROCHE-765862

PATIENT
  Sex: Female
  Weight: 63.5 kg

DRUGS (3)
  1. ACCUTANE [Suspect]
     Indication: ACNE
     Route: 065
     Dates: start: 19890730, end: 19900430
  2. ACCUTANE [Suspect]
     Route: 065
     Dates: start: 20000101
  3. ACCUTANE [Suspect]
     Route: 065
     Dates: start: 19990101

REACTIONS (5)
  - COLITIS ULCERATIVE [None]
  - ANAL FISSURE [None]
  - CROHN'S DISEASE [None]
  - DEPRESSION [None]
  - INFLAMMATORY BOWEL DISEASE [None]
